FAERS Safety Report 18938284 (Version 1)
Quarter: 2021Q1

REPORT INFORMATION
  Report Type: Other
  Country: PT (occurrence: PT)
  Receive Date: 20210225
  Receipt Date: 20210225
  Transmission Date: 20210420
  Serious: Yes (Other)
  Sender: FDA-Public Use
  Company Number: PT-ROCHE-2770274

PATIENT
  Age: 79 Year
  Sex: Female

DRUGS (2)
  1. TRASTUZUMAB. [Suspect]
     Active Substance: TRASTUZUMAB
     Indication: INVASIVE DUCTAL BREAST CARCINOMA
     Dosage: 414 MG
     Route: 041
     Dates: start: 20200608, end: 20200911
  2. PERJETA [Suspect]
     Active Substance: PERTUZUMAB
     Indication: INVASIVE DUCTAL BREAST CARCINOMA
     Route: 042
     Dates: start: 20200608, end: 20200911

REACTIONS (5)
  - Cardiotoxicity [Recovered/Resolved with Sequelae]
  - Pleural effusion [Recovered/Resolved with Sequelae]
  - Left ventricular dysfunction [Recovered/Resolved with Sequelae]
  - Ventricular hypokinesia [Not Recovered/Not Resolved]
  - Ventricular dyssynchrony [Not Recovered/Not Resolved]

NARRATIVE: CASE EVENT DATE: 20200914
